FAERS Safety Report 8374311-1 (Version None)
Quarter: 2012Q2

REPORT INFORMATION
  Report Type: 
  Country: None (occurrence: None)
  Receive Date: 20120521
  Receipt Date: 20120517
  Transmission Date: 20120825
  Serious: Yes (Other)
  Sender: FDA-Public Use
  Company Number: PHHY2012CA027716

PATIENT
  Sex: Male

DRUGS (2)
  1. GILENYA [Suspect]
     Indication: MULTIPLE SCLEROSIS
     Dosage: 0.5 MG, QD
     Route: 048
     Dates: start: 20120324, end: 20120425
  2. LYRICA [Concomitant]
     Indication: NEURALGIA
     Dosage: 25 MG, TID

REACTIONS (5)
  - PALPITATIONS [None]
  - ANXIETY [None]
  - NERVOUSNESS [None]
  - HEART RATE ABNORMAL [None]
  - FATIGUE [None]
